FAERS Safety Report 4634891-6 (Version None)
Quarter: 2005Q2

REPORT INFORMATION
  Report Type: 
  Country: None (occurrence: None)
  Receive Date: 20050412
  Receipt Date: 20050404
  Transmission Date: 20051028
  Serious: Yes (Hospitalization)
  Sender: FDA-Public Use
  Company Number: 2005040682

PATIENT
  Age: 68 Year
  Sex: Male
  Weight: 70 kg

DRUGS (12)
  1. ALDACTONE [Suspect]
     Indication: ILL-DEFINED DISORDER
     Dosage: 50 MG (DAILY), ORAL
     Route: 048
     Dates: start: 20041227
  2. HEPARIN SODIUM [Suspect]
     Indication: ILL-DEFINED DISORDER
     Dosage: 0.4 ML (BID), SUBCUTANEOUS
     Route: 058
     Dates: start: 20041222
  3. INSULIN [Suspect]
     Indication: ILL-DEFINED DISORDER
     Dosage: SUBCUTANEOUS
     Route: 058
     Dates: start: 20041222
  4. SUFENTANIL CITRATE [Suspect]
     Indication: ILL-DEFINED DISORDER
     Dates: start: 20041222, end: 20050106
  5. VANCOMYCIN HYDROCHLORIDE [Suspect]
     Indication: ILL-DEFINED DISORDER
     Dosage: 2 GRAM (DAILY), INTRAVENOUS
     Route: 042
     Dates: start: 20041227
  6. ESOMEPRAZOLE MAGNESIUM (ESOMEPRAZOLE MAGNESIUM) [Suspect]
     Indication: ILL-DEFINED DISORDER
     Dosage: 40 MG (DAILY), ORAL
     Route: 048
     Dates: start: 20041225, end: 20050107
  7. METFORMIN HCL [Concomitant]
  8. CANDESARTAN CILEXETIL (CANDESARTAN CILEXETIL) [Concomitant]
  9. AMLODIPINE BESYLATE [Concomitant]
  10. PRAVASTATIN SODIUM [Concomitant]
  11. QUINIDINE HYDROCHLORIDE (QUINIDINE HYDROCHLORIDE) [Concomitant]
  12. PROPOFOL [Concomitant]

REACTIONS (4)
  - DIARRHOEA [None]
  - ENTEROCOCCAL INFECTION [None]
  - LUNG DISORDER [None]
  - PNEUMONIA KLEBSIELLA [None]
